FAERS Safety Report 4553327-7 (Version None)
Quarter: 2005Q1

REPORT INFORMATION
  Report Type: 
  Country: None (occurrence: None)
  Receive Date: 20050112
  Receipt Date: 20050103
  Transmission Date: 20050727
  Serious: Yes (Other)
  Sender: FDA-Public Use
  Company Number: 2004UW26012

PATIENT
  Age: 35 Year
  Sex: Male

DRUGS (4)
  1. CRESTOR [Suspect]
     Indication: BLOOD TRIGLYCERIDES INCREASED
     Dosage: 20 MG QD PO
     Route: 048
     Dates: start: 20040301, end: 20041218
  2. TRICOR [Suspect]
  3. TRICOR [Suspect]
     Dates: start: 20041008, end: 20041218
  4. PRAVACHOL [Concomitant]

REACTIONS (5)
  - DIFFICULTY IN WALKING [None]
  - DRUG INEFFECTIVE [None]
  - MYOSITIS [None]
  - PYREXIA [None]
  - REFUSAL OF TREATMENT BY PATIENT [None]
